FAERS Safety Report 22904197 (Version 4)
Quarter: 2024Q2

REPORT INFORMATION
  Report Type: Report from Study
  Country: GT (occurrence: GT)
  Receive Date: 20230905
  Receipt Date: 20240603
  Transmission Date: 20240716
  Serious: Yes (Other)
  Sender: FDA-Public Use
  Company Number: GT-002147023-NVSC2020GT264715

PATIENT
  Age: 64 Year
  Sex: Female

DRUGS (9)
  1. COSENTYX [Suspect]
     Active Substance: SECUKINUMAB
     Indication: Psoriasis
     Dosage: 300 MG
     Route: 058
     Dates: start: 20191114, end: 20191212
  2. COSENTYX [Suspect]
     Active Substance: SECUKINUMAB
     Dosage: 300 MG
     Route: 058
     Dates: start: 20191213, end: 20211208
  3. COSENTYX [Suspect]
     Active Substance: SECUKINUMAB
     Dosage: 150 MG
     Route: 058
     Dates: start: 20211209, end: 20211210
  4. COSENTYX [Suspect]
     Active Substance: SECUKINUMAB
     Dosage: 300 MG
     Route: 058
     Dates: start: 20220203
  5. FOLIC ACID [Concomitant]
     Active Substance: FOLIC ACID
     Indication: Product used for unknown indication
     Dosage: UNK
     Route: 065
     Dates: start: 200502
  6. METHOTREXATE [Concomitant]
     Active Substance: METHOTREXATE
     Indication: Product used for unknown indication
     Dosage: UNK
     Route: 065
     Dates: start: 200502
  7. SALICYLIC ACID [Concomitant]
     Active Substance: SALICYLIC ACID
     Indication: Product used for unknown indication
     Dosage: UNK
     Route: 065
     Dates: start: 2019
  8. UREA [Concomitant]
     Active Substance: UREA
     Indication: Product used for unknown indication
     Dosage: UNK
     Route: 065
     Dates: start: 2019
  9. COAL TAR [Concomitant]
     Active Substance: COAL TAR
     Indication: Product used for unknown indication
     Dosage: UNK
     Route: 065
     Dates: start: 2019

REACTIONS (11)
  - Amoebic dysentery [Recovered/Resolved]
  - Amoebic dysentery [Recovered/Resolved]
  - Streptococcus test positive [Recovering/Resolving]
  - Anxiety [Recovering/Resolving]
  - Papilloma [Recovered/Resolved]
  - Papilloma [Recovered/Resolved]
  - Urinary tract infection [Recovered/Resolved]
  - Urinary tract infection [Recovered/Resolved]
  - Urinary tract infection [Recovered/Resolved]
  - Respiratory tract infection [Recovered/Resolved]
  - Upper respiratory tract infection [Recovered/Resolved]

NARRATIVE: CASE EVENT DATE: 20200917
